FAERS Safety Report 9703485 (Version 1)
Quarter: 2013Q4

REPORT INFORMATION
  Report Type: Spontaneous
  Country: US (occurrence: None)
  Receive Date: 20131121
  Receipt Date: 20131121
  Transmission Date: 20140711
  Serious: Yes (Life-Threatening, Disabling, Other)
  Sender: FDA-Public Use
  Company Number: None

PATIENT
  Age: 49 Year
  Sex: Female
  Weight: 58.97 kg

DRUGS (1)
  1. HYDROCORTISONE [Suspect]
     Indication: ADRENAL INSUFFICIENCY
     Dosage: 25 MG DAY PLUS STRESS DOSING THREE TIMES DAILY TAKEN BY MOUTH
     Route: 048
     Dates: start: 20130501, end: 20131021

REACTIONS (3)
  - Malaise [None]
  - Presyncope [None]
  - Product substitution issue [None]
